FAERS Safety Report 14251350 (Version 2)
Quarter: 2017Q4

REPORT INFORMATION
  Report Type: Spontaneous
  Country: JP (occurrence: JP)
  Receive Date: 20171205
  Receipt Date: 20171219
  Transmission Date: 20180321
  Serious: Yes (Other)
  Sender: FDA-Public Use
  Company Number: JP-AMGEN-JPNSP2017065017

PATIENT
  Age: 65 Year
  Sex: Male

DRUGS (18)
  1. GASTER [Concomitant]
     Active Substance: FAMOTIDINE
     Dosage: 2 DF (20 MG), BID (AFTER BREAKFAST AND DINNER)
  2. AMLODIN [Concomitant]
     Active Substance: AMLODIPINE BESYLATE
     Dosage: 5 MG, QD 1DF (AFTER BREAKFAST)
  3. ITOROL [Concomitant]
     Active Substance: ISOSORBIDE MONONITRATE
     Dosage: 2 DF (20 MG), BID (AFTER BREAKFAST AND DINNER)
  4. REPATHA [Suspect]
     Active Substance: EVOLOCUMAB
     Dosage: 140 MG, Q2WK
     Route: 058
     Dates: start: 2017
  5. PANALDINE [Concomitant]
     Active Substance: TICLOPIDINE HYDROCHLORIDE
     Dosage: 2 DF (100 MG), BID  (AFTER BREAKFAST AND DINNER)
  6. BLOPRESS [Concomitant]
     Active Substance: CANDESARTAN CILEXETIL
     Dosage: 4 MG, QD (AFTER BREAKFAST)
  7. BAYASPIRIN [Concomitant]
     Active Substance: ASPIRIN
     Dosage: 100 MG, QD (AFTER BREAKFAST)
  8. TENELIA [Concomitant]
     Active Substance: TENELIGLIPTIN
     Dosage: 20 MG, QD (AFTER BREAKFAST)
  9. REPATHA [Suspect]
     Active Substance: EVOLOCUMAB
     Indication: TYPE IIA HYPERLIPIDAEMIA
     Dosage: 140 MG, Q2WK
     Route: 058
     Dates: start: 20160616
  10. SINLESTAL [Concomitant]
     Dosage: 4 DF  (250 MG), BID (AFTER BREAKFAST AND DINNER)
  11. JUVELA N [Concomitant]
     Active Substance: TOCOPHERYL NICOTINATE, D-.ALPHA.
     Dosage: 3 DF (100 MG AFTER BREAKFAST, LUNCH,DINNER), TID
  12. LIPITOR [Concomitant]
     Active Substance: ATORVASTATIN CALCIUM
     Dosage: 4 DF (10 MG), BID (AFTER BREAKFAST AND DINNER)
  13. TRESIBA [Concomitant]
     Active Substance: INSULIN DEGLUDEC
     Dosage: 12 UNIT (TOTA 300 UNIT), QD (JUST BEFORE SUPPER)
  14. HICEE [Concomitant]
     Dosage: 2 DF, BID (AFTER BREAKFAST AND DINNER), 25%
     Route: 048
  15. BLOPRESS [Concomitant]
     Active Substance: CANDESARTAN CILEXETIL
     Dosage: 8 MG, QD (AFTER BREAKFAST)
  16. CHOLEBINE [Concomitant]
     Active Substance: COLESTILAN CHLORIDE
     Dosage: 2 DF (500 MG), QD (AFTER LUNCH)
  17. HERBESSER [Concomitant]
     Active Substance: DILTIAZEM HYDROCHLORIDE
     Dosage: 100 MG, QD (AFTER BREAKFAST)
  18. SIGMART [Concomitant]
     Active Substance: NICORANDIL
     Dosage: 3 DF (5 MG AFTER BREAKFAST, LUNCH,DINNER), TID

REACTIONS (1)
  - Chronic myeloid leukaemia [Unknown]
